FAERS Safety Report 6850187-6 (Version None)
Quarter: 2010Q3

REPORT INFORMATION
  Report Type: 
  Country: None (occurrence: None)
  Receive Date: 20100716
  Receipt Date: 20071011
  Transmission Date: 20110219
  Serious: No
  Sender: FDA-Public Use
  Company Number: US-PFIZER INC-2007086985

PATIENT
  Sex: Female
  Weight: 63.5 kg

DRUGS (2)
  1. CHANTIX [Suspect]
     Indication: SMOKING CESSATION THERAPY
     Dates: start: 20071001, end: 20071010
  2. SOMA [Concomitant]

REACTIONS (5)
  - ARTHROPATHY [None]
  - EMOTIONAL DISORDER [None]
  - EUPHORIC MOOD [None]
  - FATIGUE [None]
  - FEELING ABNORMAL [None]
